FAERS Safety Report 4990852-9 (Version None)
Quarter: 2006Q2

REPORT INFORMATION
  Report Type: 
  Country: None (occurrence: None)
  Receive Date: 20060428
  Receipt Date: 20060420
  Transmission Date: 20061013
  Serious: Yes (Other)
  Sender: FDA-Public Use
  Company Number: HQWYE941824APR06

PATIENT
  Sex: Female

DRUGS (1)
  1. ADVIL MIGRAINE LIQUI-GELS [Suspect]
     Dosage: ORAL
     Route: 048

REACTIONS (1)
  - DRUG TOXICITY [None]
